FAERS Safety Report 21544737 (Version 2)
Quarter: 2022Q4

REPORT INFORMATION
  Report Type: Report from Study
  Country: US (occurrence: US)
  Receive Date: 20221102
  Receipt Date: 20221227
  Transmission Date: 20230112
  Serious: No
  Sender: FDA-Public Use
  Company Number: US-INCYTE CORPORATION-2022IN009266

PATIENT

DRUGS (6)
  1. JAKAFI [Suspect]
     Active Substance: RUXOLITINIB
     Indication: Myelofibrosis
     Dosage: 5 MILLIGRAM (X 2 TABLETS IN THE EVENING)
     Route: 048
     Dates: start: 20220921
  2. JAKAFI [Suspect]
     Active Substance: RUXOLITINIB
     Dosage: 5 MILLIGRAM ( 2 TABLETS) ONCE DAILY IN PM
     Route: 048
     Dates: start: 20220921
  3. JAKAFI [Suspect]
     Active Substance: RUXOLITINIB
     Dosage: 5MG (2 TABLETS) TWICE DAILY
     Route: 048
     Dates: start: 20220921
  4. JAKAFI [Suspect]
     Active Substance: RUXOLITINIB
     Dosage: 5MG (2 TABLETS) TWICE DAILY
     Route: 048
     Dates: start: 20220921, end: 20221207
  5. AMLODIPINE [Concomitant]
     Active Substance: AMLODIPINE BESYLATE
     Indication: Product used for unknown indication
     Route: 065
  6. ALLOPURINOL [Concomitant]
     Active Substance: ALLOPURINOL
     Indication: Product used for unknown indication
     Route: 065

REACTIONS (1)
  - Lip dry [Unknown]
